FAERS Safety Report 8405368-7 (Version None)
Quarter: 2012Q2

REPORT INFORMATION
  Report Type: 
  Country: None (occurrence: None)
  Receive Date: 20120604
  Receipt Date: 20120529
  Transmission Date: 20120825
  Serious: Yes (Hospitalization, Other)
  Sender: FDA-Public Use
  Company Number: US-AMGEN-USASP2012024570

PATIENT
  Age: 67 Year
  Sex: Female

DRUGS (2)
  1. TREXALL [Concomitant]
     Dosage: UNK
  2. ENBREL [Suspect]
     Indication: RHEUMATOID ARTHRITIS
     Dosage: 50 MG, QWK
     Dates: start: 20050105

REACTIONS (13)
  - BLOOD IRON DECREASED [None]
  - BONE ATROPHY [None]
  - CONSTIPATION [None]
  - ARTHRITIS [None]
  - PERIPHERAL COLDNESS [None]
  - KNEE ARTHROPLASTY [None]
  - NECK PAIN [None]
  - ARTHRALGIA [None]
  - INJECTION SITE PAIN [None]
  - SPINAL COMPRESSION FRACTURE [None]
  - MYALGIA [None]
  - GAIT DISTURBANCE [None]
  - HEADACHE [None]
